FAERS Safety Report 15329810 (Version 3)
Quarter: 2018Q3

REPORT INFORMATION
  Report Type: Spontaneous
  Country: US (occurrence: US)
  Receive Date: 20180829
  Receipt Date: 20180926
  Transmission Date: 20181010
  Serious: No
  Sender: FDA-Public Use
  Company Number: US-PFIZER INC-2018100181

PATIENT
  Age: 60 Year
  Sex: Female
  Weight: 108.86 kg

DRUGS (15)
  1. DULOXETINE HCL [Concomitant]
     Active Substance: DULOXETINE HYDROCHLORIDE
     Indication: PAIN
     Dosage: 60 MG, 2X/DAY
     Route: 048
  2. FLUOXETINE [Concomitant]
     Active Substance: FLUOXETINE HYDROCHLORIDE
     Indication: BIPOLAR DISORDER
     Dosage: 40 MG, 1X/DAY
     Route: 048
  3. DAPSONE. [Concomitant]
     Active Substance: DAPSONE
     Indication: INFECTION
     Dosage: 100 MG, 1X/DAY
     Route: 048
     Dates: start: 20180228
  4. TRAZODONE [Concomitant]
     Active Substance: TRAZODONE HYDROCHLORIDE
     Indication: SLEEP DISORDER
     Dosage: 50 MG, 1X/DAY(50MG TABLET ONCE AT BEDTIME)
     Route: 048
  5. HYDROXYZINE [Concomitant]
     Active Substance: HYDROXYZINE HYDROCHLORIDE
     Indication: PRURITUS
     Dosage: 50 MG, 3X/DAY
     Route: 048
  6. OXCARBAZEPINE. [Concomitant]
     Active Substance: OXCARBAZEPINE
     Indication: BIPOLAR DISORDER
     Dosage: 150 MG, 2X/DAY
     Route: 048
  7. LIDOCAINE. [Concomitant]
     Active Substance: LIDOCAINE
     Indication: SKIN LESION
  8. LYRICA [Suspect]
     Active Substance: PREGABALIN
     Indication: FIBROMYALGIA
     Dosage: 375 MG, DAILY (2 CAPSULES IN THE MORNING, 1 CAPSULE IN THE AFTERNOON + 2 CAPSULES AT BEDTIME/NIGHT)
     Route: 048
  9. LYRICA [Suspect]
     Active Substance: PREGABALIN
     Indication: NEURALGIA
     Dosage: UNK (TWO IN THE MORNING, ONE IN THE AFTERNOON, AND TWO IN THE EVENING. I TAKE FIVE A DAY)
  10. LIDOCAINE. [Concomitant]
     Active Substance: LIDOCAINE
     Indication: ULCER
     Dosage: APPLY TO SORE ABOUT 3 TIMES A DAY
  11. SOMA [Concomitant]
     Active Substance: CARISOPRODOL
     Indication: PAIN
     Dosage: 350 MG, 3X/DAY
     Route: 048
  12. DULOXETINE HCL [Concomitant]
     Active Substance: DULOXETINE HYDROCHLORIDE
     Indication: BIPOLAR DISORDER
  13. HYDROCODONE [Concomitant]
     Active Substance: HYDROCODONE
     Indication: PAIN
     Dosage: 10MG/325MG CAPSULE 4 TIMES A DAY
     Route: 048
  14. ALPRAZOLAM. [Concomitant]
     Active Substance: ALPRAZOLAM
     Indication: BIPOLAR DISORDER
     Dosage: 1 MG, 3X/DAY
     Route: 048
  15. TOPAMAX [Concomitant]
     Active Substance: TOPIRAMATE
     Indication: BIPOLAR DISORDER
     Dosage: 200 MG, 2X/DAY
     Route: 048

REACTIONS (12)
  - Migraine [Unknown]
  - Arthropathy [Unknown]
  - Back pain [Not Recovered/Not Resolved]
  - Arthralgia [Not Recovered/Not Resolved]
  - Back disorder [Unknown]
  - Intentional product misuse [Unknown]
  - Hyperhidrosis [Unknown]
  - Musculoskeletal discomfort [Unknown]
  - Feeling cold [Unknown]
  - Skin disorder [Unknown]
  - Product use issue [Unknown]
  - Tremor [Recovering/Resolving]
